FAERS Safety Report 21834882 (Version 1)
Quarter: 2023Q1

REPORT INFORMATION
  Report Type: Spontaneous
  Country: US (occurrence: US)
  Receive Date: 20230108
  Receipt Date: 20230108
  Transmission Date: 20230418
  Serious: No
  Sender: FDA-Public Use
  Company Number: US-drreddys-SPO/USA/22/0158520

PATIENT
  Age: 87 Year
  Sex: Male

DRUGS (15)
  1. LENALIDOMIDE [Suspect]
     Active Substance: LENALIDOMIDE
     Indication: Plasma cell myeloma
     Dosage: TAKE 1 CAPSULE BY MOUTH DAILY ON DAYS 1-21 OUT OF 28 DAY CYCLE
     Route: 048
     Dates: start: 20221111
  2. LANSOPRAZOLE [Concomitant]
     Active Substance: LANSOPRAZOLE
     Indication: Product used for unknown indication
  3. METOPROLOL SUCCINATE [Concomitant]
     Active Substance: METOPROLOL SUCCINATE
     Indication: Product used for unknown indication
  4. PANTOPRAZOLE SODIUM [Concomitant]
     Active Substance: PANTOPRAZOLE SODIUM
     Indication: Product used for unknown indication
  5. BENADRYL ALLERGY [Concomitant]
     Active Substance: DIPHENHYDRAMINE HYDROCHLORIDE
     Indication: Product used for unknown indication
  6. ZYRTEC [Concomitant]
     Active Substance: CETIRIZINE HYDROCHLORIDE
     Indication: Product used for unknown indication
  7. ACYCLOVIR [Concomitant]
     Active Substance: ACYCLOVIR
     Indication: Product used for unknown indication
  8. DICYCLOMINE TAB 20MG [Concomitant]
     Indication: Product used for unknown indication
  9. ELIQUIS [Concomitant]
     Active Substance: APIXABAN
     Indication: Product used for unknown indication
  10. FUROSEMIDE TAB 20MG [Concomitant]
     Indication: Product used for unknown indication
  11. LISINOPRIL TAB 40MG [Concomitant]
     Indication: Product used for unknown indication
  12. TEMAZEPAM CAP 15MG [Concomitant]
     Indication: Product used for unknown indication
  13. TRAMADOL HCL TAB 50MG [Concomitant]
     Indication: Product used for unknown indication
  14. VITAMIN C TAB 1000MG [Concomitant]
     Indication: Product used for unknown indication
  15. TAMSULOSIN H CAP [Concomitant]
     Indication: Product used for unknown indication

REACTIONS (2)
  - Fatigue [Unknown]
  - Dyspnoea [Unknown]
